FAERS Safety Report 12545116 (Version 1)
Quarter: 2016Q3

REPORT INFORMATION
  Report Type: Spontaneous
  Country: RU (occurrence: RU)
  Receive Date: 20160711
  Receipt Date: 20160711
  Transmission Date: 20161109
  Serious: Yes (Other)
  Sender: FDA-Public Use
  Company Number: RU-BAYER-2016-135120

PATIENT
  Age: 26 Year
  Sex: Female

DRUGS (1)
  1. YARINA [Suspect]
     Active Substance: DROSPIRENONE\ETHINYL ESTRADIOL
     Indication: PLANNING TO BECOME PREGNANT
     Dosage: UNK
     Route: 048

REACTIONS (3)
  - Abortion spontaneous [None]
  - Maternal exposure before pregnancy [None]
  - Off label use [None]
